FAERS Safety Report 5230168-9 (Version None)
Quarter: 2007Q1

REPORT INFORMATION
  Report Type: 
  Country: None (occurrence: None)
  Receive Date: 20070206
  Receipt Date: 20060918
  Transmission Date: 20070707
  Serious: No
  Sender: FDA-Public Use
  Company Number: US-GLAXOSMITHKLINE-A0620513A

PATIENT
  Age: 37 Year
  Sex: Female

DRUGS (4)
  1. PAXIL [Suspect]
     Indication: PANIC DISORDER
     Dosage: 37.5MG PER DAY
     Route: 048
  2. KLONOPIN [Concomitant]
  3. NIFEDIPINE [Concomitant]
  4. METFORMIN HCL [Concomitant]

REACTIONS (6)
  - BALANCE DISORDER [None]
  - CHEST PAIN [None]
  - DIZZINESS [None]
  - ENURESIS [None]
  - NIGHTMARE [None]
  - TREATMENT NONCOMPLIANCE [None]
